FAERS Safety Report 16174421 (Version 1)
Quarter: 2019Q2

REPORT INFORMATION
  Report Type: Report from Study
  Country: NL (occurrence: NL)
  Receive Date: 20190409
  Receipt Date: 20190409
  Transmission Date: 20190711
  Serious: Yes (Hospitalization)
  Sender: FDA-Public Use
  Company Number: PHHY2019NL079006

PATIENT
  Age: 70 Year
  Sex: Female

DRUGS (3)
  1. ZOMETA [Suspect]
     Active Substance: ZOLEDRONIC ACID
     Dosage: 1 DF, UNK (EVERY 26 WEEKS)
     Route: 042
     Dates: start: 20190402
  2. ZOMETA [Suspect]
     Active Substance: ZOLEDRONIC ACID
     Indication: BREAST CANCER
     Dosage: 1 DF, UNK (EVERY 26 WEEKS)
     Route: 042
     Dates: start: 20151002
  3. ZOMETA [Suspect]
     Active Substance: ZOLEDRONIC ACID
     Dosage: 1 DF, UNK (EVERY 26 WEEKS)
     Route: 042
     Dates: start: 20181003

REACTIONS (2)
  - Inappropriate schedule of product administration [Unknown]
  - Haemorrhage [Recovered/Resolved]

NARRATIVE: CASE EVENT DATE: 20190320
